FAERS Safety Report 7621073-9 (Version None)
Quarter: 2011Q3

REPORT INFORMATION
  Report Type: 
  Country: None (occurrence: None)
  Receive Date: 20110719
  Receipt Date: 20100920
  Transmission Date: 20111222
  Serious: No
  Sender: FDA-Public Use
  Company Number: US-KINGPHARMUSA00001-K201001175

PATIENT
  Sex: Female

DRUGS (3)
  1. LORAZEPAM [Suspect]
     Dosage: 1 MG, UNK
  2. LEVOXYL [Suspect]
     Dosage: UNK
     Route: 048
  3. PROCARDIA XL [Suspect]
     Dosage: UNK

REACTIONS (3)
  - INSOMNIA [None]
  - NAUSEA [None]
  - ABDOMINAL DISCOMFORT [None]
